FAERS Safety Report 11003962 (Version 1)
Quarter: 2015Q2

REPORT INFORMATION
  Report Type: Spontaneous
  Country: US (occurrence: None)
  Receive Date: 20150408
  Receipt Date: 20150408
  Transmission Date: 20150821
  Serious: No
  Sender: FDA-Public Use
  Company Number: None

PATIENT
  Sex: Female

DRUGS (15)
  1. METOPROLOL [Concomitant]
     Active Substance: METOPROLOL
  2. Q-PAP [Concomitant]
     Active Substance: ACETAMINOPHEN
  3. LACTULOSE. [Concomitant]
     Active Substance: LACTULOSE
  4. NEXIUM [Concomitant]
     Active Substance: ESOMEPRAZOLE MAGNESIUM
  5. TACROLIMUS. [Concomitant]
     Active Substance: TACROLIMUS
  6. OMEPAZOLE [Concomitant]
  7. SOVALDI [Suspect]
     Active Substance: SOFOSBUVIR
     Indication: CHRONIC HEPATITIS C
     Route: 048
     Dates: start: 20141219
  8. RIBASPHERE [Suspect]
     Active Substance: RIBAVIRIN
     Indication: CHRONIC HEPATITIS C
     Route: 048
     Dates: start: 20141212
  9. LEVOTHYROXINE [Concomitant]
     Active Substance: LEVOTHYROXINE
  10. ASPIRIN. [Concomitant]
     Active Substance: ASPIRIN
  11. NYSTATIN. [Concomitant]
     Active Substance: NYSTATIN
  12. MYCOPHENOLIC [Concomitant]
     Active Substance: MYCOPHENOLIC ACID
  13. MAG-OXIDE [Concomitant]
  14. TRAMADOL [Concomitant]
     Active Substance: TRAMADOL
  15. PANTOPRAZOLE [Concomitant]
     Active Substance: PANTOPRAZOLE SODIUM

REACTIONS (1)
  - Headache [None]
